FAERS Safety Report 18165826 (Version 1)
Quarter: 2020Q3

REPORT INFORMATION
  Report Type: Spontaneous
  Country: US (occurrence: US)
  Receive Date: 20200819
  Receipt Date: 20200819
  Transmission Date: 20201103
  Serious: No
  Sender: FDA-Public Use
  Company Number: US-ELI_LILLY_AND_COMPANY-US202008006624

PATIENT
  Sex: Female

DRUGS (2)
  1. OLUMIANT [Suspect]
     Active Substance: BARICITINIB
     Dosage: 2 MG, OTHER (EVERY OTHER DAY)
     Route: 048
  2. OLUMIANT [Suspect]
     Active Substance: BARICITINIB
     Indication: ANKYLOSING SPONDYLITIS
     Dosage: 2 MG, DAILY
     Route: 048

REACTIONS (4)
  - Fatigue [Not Recovered/Not Resolved]
  - Off label use [Unknown]
  - Hypersomnia [Unknown]
  - Inappropriate schedule of product administration [Unknown]
